FAERS Safety Report 11773167 (Version 1)
Quarter: 2015Q4

REPORT INFORMATION
  Report Type: Spontaneous
  Country: US (occurrence: US)
  Receive Date: 20151124
  Receipt Date: 20151124
  Transmission Date: 20160304
  Serious: No
  Sender: FDA-Public Use
  Company Number: US-SUPERNUS PHARMACEUTICALS, INC.-2015SUP00113

PATIENT
  Sex: Female
  Weight: 90.7 kg

DRUGS (9)
  1. TROKENDI XR [Suspect]
     Active Substance: TOPIRAMATE
     Dosage: UNK
     Dates: start: 2015
  2. MAXALT [Concomitant]
     Active Substance: RIZATRIPTAN BENZOATE
  3. NIACIN. [Concomitant]
     Active Substance: NIACIN
  4. TROKENDI XR [Suspect]
     Active Substance: TOPIRAMATE
     Indication: MIGRAINE
     Dosage: 25 MG, 1X/DAY
     Route: 048
     Dates: start: 201505, end: 2015
  5. ZOMIG [Concomitant]
     Active Substance: ZOLMITRIPTAN
  6. STEROIDS (UNSPECIFIED) [Concomitant]
  7. LOPRESSOR HCTZ [Concomitant]
  8. POLICOSANOL [Concomitant]
  9. PHENERGAN [Concomitant]
     Active Substance: PROMETHAZINE HYDROCHLORIDE

REACTIONS (6)
  - Drug interaction [Recovered/Resolved]
  - Tinnitus [Unknown]
  - Dry mouth [Unknown]
  - Memory impairment [Not Recovered/Not Resolved]
  - Mania [Recovered/Resolved]
  - Off label use [Unknown]

NARRATIVE: CASE EVENT DATE: 2015
